FAERS Safety Report 10313585 (Version 1)
Quarter: 2014Q3

REPORT INFORMATION
  Report Type: Spontaneous
  Country: US (occurrence: None)
  Receive Date: 20140716
  Receipt Date: 20140716
  Transmission Date: 20150326
  Serious: Yes (Life-Threatening)
  Sender: FDA-Public Use
  Company Number: 2447074

PATIENT
  Age: 67 Year
  Sex: Male
  Weight: 76.9 kg

DRUGS (1)
  1. LIDOCAINE HCL [Suspect]
     Active Substance: LIDOCAINE HYDROCHLORIDE
     Indication: PRODUCT USED FOR UNKNOWN INDICATION
     Route: 061
     Dates: start: 20140710, end: 20140710

REACTIONS (2)
  - Obstructive airways disorder [None]
  - Foreign body [None]

NARRATIVE: CASE EVENT DATE: 20140710
